FAERS Safety Report 18314285 (Version 1)
Quarter: 2020Q3

REPORT INFORMATION
  Report Type: Spontaneous
  Country: ES (occurrence: ES)
  Receive Date: 20200925
  Receipt Date: 20200925
  Transmission Date: 20201103
  Serious: Yes (Other)
  Sender: FDA-Public Use
  Company Number: ES-009507513-1903ESP007243

PATIENT
  Age: 28 Year
  Sex: Female

DRUGS (1)
  1. IMPLANON NXT [Suspect]
     Active Substance: ETONOGESTREL
     Indication: CONTRACEPTION
     Dosage: 1 IMPLANT, UNK
     Route: 059
     Dates: start: 201802

REACTIONS (20)
  - Malaise [Unknown]
  - Metrorrhagia [Unknown]
  - Stress [Unknown]
  - Stress [Not Recovered/Not Resolved]
  - Adnexa uteri pain [Recovered/Resolved]
  - Depressed mood [Unknown]
  - Menstruation irregular [Recovering/Resolving]
  - Device placement issue [Not Recovered/Not Resolved]
  - Urinary tract infection [Recovered/Resolved]
  - Breast pain [Recovering/Resolving]
  - Menorrhagia [Recovered/Resolved]
  - Dental caries [Unknown]
  - Hypomenorrhoea [Unknown]
  - Mood altered [Unknown]
  - Breast enlargement [Not Recovered/Not Resolved]
  - Hypothyroidism [Unknown]
  - Feeling abnormal [Unknown]
  - Vaginal haemorrhage [Recovered/Resolved]
  - Vaginal haemorrhage [Recovered/Resolved]
  - Weight increased [Not Recovered/Not Resolved]

NARRATIVE: CASE EVENT DATE: 201802
